FAERS Safety Report 17688854 (Version 4)
Quarter: 2021Q2

REPORT INFORMATION
  Report Type: Report from Study
  Country: BR (occurrence: BR)
  Receive Date: 20200421
  Receipt Date: 20210429
  Transmission Date: 20210716
  Serious: Yes (Death, Hospitalization, Other)
  Sender: FDA-Public Use
  Company Number: NVSC2020BR106402

PATIENT
  Age: 66 Year
  Sex: Male
  Weight: 75 kg

DRUGS (1)
  1. VOTRIENT [Suspect]
     Active Substance: PAZOPANIB HYDROCHLORIDE
     Indication: METASTATIC RENAL CELL CARCINOMA
     Dosage: 2 DF (ON MORNING)
     Route: 048
     Dates: start: 20200324, end: 202004

REACTIONS (18)
  - Gait disturbance [Not Recovered/Not Resolved]
  - Feeling abnormal [Not Recovered/Not Resolved]
  - Decreased appetite [Recovered/Resolved]
  - Dyspnoea [Recovered/Resolved]
  - Dyspnoea [Not Recovered/Not Resolved]
  - Malaise [Not Recovered/Not Resolved]
  - Metastatic renal cell carcinoma [Fatal]
  - Deafness [Not Recovered/Not Resolved]
  - Asthenia [Not Recovered/Not Resolved]
  - Bone lesion [Not Recovered/Not Resolved]
  - Anaemia [Unknown]
  - Asthenia [Recovered/Resolved]
  - Metastasis [Not Recovered/Not Resolved]
  - Eye disorder [Not Recovered/Not Resolved]
  - Pain [Not Recovered/Not Resolved]
  - Drug ineffective [Not Recovered/Not Resolved]
  - Malignant neoplasm progression [Fatal]
  - Renal pain [Recovered/Resolved]

NARRATIVE: CASE EVENT DATE: 202003
